FAERS Safety Report 14339830 (Version 3)
Quarter: 2018Q3

REPORT INFORMATION
  Report Type: Spontaneous
  Country: GB (occurrence: GB)
  Receive Date: 20171230
  Receipt Date: 20180710
  Transmission Date: 20181010
  Serious: Yes (Death, Hospitalization)
  Sender: FDA-Public Use
  Company Number: GB-MYLANLABS-2017M1083089

PATIENT
  Age: 69 Year
  Sex: Male
  Weight: 77.56 kg

DRUGS (2)
  1. CAPECITABINE. [Suspect]
     Active Substance: CAPECITABINE
     Indication: GASTROINTESTINAL CARCINOMA
     Dosage: 2500 MG, QD
     Route: 048
     Dates: start: 20170418, end: 20170430
  2. ATORVASTATIN [Concomitant]
     Active Substance: ATORVASTATIN
     Indication: PRODUCT USED FOR UNKNOWN INDICATION
     Dosage: UNK

REACTIONS (8)
  - Mouth ulceration [Not Recovered/Not Resolved]
  - Renal failure [Not Recovered/Not Resolved]
  - Drug prescribing error [Unknown]
  - Diarrhoea [Recovered/Resolved]
  - Gastrointestinal inflammation [Not Recovered/Not Resolved]
  - Oesophageal ulcer perforation [Not Recovered/Not Resolved]
  - Cardiac arrest [Fatal]
  - Nausea [Recovered/Resolved]

NARRATIVE: CASE EVENT DATE: 20170421
